FAERS Safety Report 6289266-3 (Version None)
Quarter: 2009Q3

REPORT INFORMATION
  Report Type: 
  Country: None (occurrence: None)
  Receive Date: 20090730
  Receipt Date: 20071115
  Transmission Date: 20100115
  Serious: Yes (Other)
  Sender: FDA-Public Use
  Company Number: US-ASTRAZENECA-2007UW14901

PATIENT
  Age: 582 Month
  Sex: Female
  Weight: 72.6 kg

DRUGS (20)
  1. SEROQUEL [Suspect]
     Indication: SLEEP DISORDER
     Dosage: 100MG-300MG
     Route: 048
     Dates: start: 20020207
  2. SEROQUEL [Suspect]
     Route: 048
     Dates: start: 20020411
  3. SEROQUEL [Suspect]
     Route: 048
     Dates: start: 20060905
  4. SEROQUEL [Suspect]
     Dosage: 300MG, 2 AT NIGHT
     Route: 048
     Dates: start: 20061016
  5. ZETIA [Concomitant]
     Route: 048
     Dates: start: 20060905
  6. ZELNORM [Concomitant]
     Route: 048
     Dates: start: 20060905
  7. TRAZODONE HCL [Concomitant]
     Dosage: 50MG TO 150MG
     Route: 048
     Dates: start: 20010119
  8. COUMADIN [Concomitant]
     Indication: BRAIN STEM STROKE
     Dosage: 6MG TO 7MG
     Dates: start: 19991002
  9. DIAZEPAM [Concomitant]
     Dosage: 2MG TO 10MG
     Route: 048
     Dates: start: 19990912
  10. DEPAKOTE [Concomitant]
     Dosage: 250MG TO 1500MG (FLUCTUATING)
     Dates: start: 20010119
  11. PREVACID [Concomitant]
     Dosage: 30MG-40MG
     Dates: start: 20030803
  12. EFFEXOR [Concomitant]
     Dosage: 75MG TO300 MG, (FLUCTUATING)
     Dates: start: 20040415
  13. VYTORIN [Concomitant]
     Dosage: 10-20MG TABLETS, EVERY DAY
     Dates: start: 20050228
  14. ATENOLOL [Concomitant]
     Indication: HYPERTENSION
     Dosage: 50MG TO 100MG
     Dates: start: 20010622
  15. DUONEB [Concomitant]
     Dosage: 2.5-0.5MG/3ML
     Dates: start: 20060329
  16. CLONAZEPAM [Concomitant]
     Dosage: 1MG-6MG, (FUCTUATING)
     Dates: start: 20010201
  17. LISINOPRIL [Concomitant]
     Dosage: 5MG TO 20MG
     Dates: start: 20050801
  18. FUROSEMIDE [Concomitant]
     Dosage: 20MG TO 40MG
     Dates: start: 20010128
  19. NITROGLYCERIN [Concomitant]
     Indication: CHEST PAIN
     Dosage: 4 NITROGLYCERIN TAKEN AT HOME
     Dates: start: 20060905
  20. HYDROXYZINE HYDROCHLORIDE [Concomitant]
     Dates: start: 19990917

REACTIONS (5)
  - DIABETES MELLITUS INADEQUATE CONTROL [None]
  - DIABETIC AUTONOMIC NEUROPATHY [None]
  - DIABETIC FOOT [None]
  - HYPOGLYCAEMIA [None]
  - TYPE 2 DIABETES MELLITUS [None]
